FAERS Safety Report 26137859 (Version 2)
Quarter: 2025Q4

REPORT INFORMATION
  Report Type: Spontaneous
  Country: JP (occurrence: JP)
  Receive Date: 20251210
  Receipt Date: 20251226
  Transmission Date: 20260119
  Serious: Yes (Other)
  Sender: AMGEN
  Company Number: JP-DSJP-DS-2025-181637-

PATIENT
  Age: 86 Year
  Sex: Female

DRUGS (1)
  1. DENOSUMAB [Suspect]
     Active Substance: DENOSUMAB
     Indication: Osteoporosis prophylaxis
     Dosage: UNK
     Route: 065

REACTIONS (2)
  - Metastases to bone [Not Recovered/Not Resolved]
  - Off label use [Unknown]
